FAERS Safety Report 4334523-0 (Version None)
Quarter: 2004Q2

REPORT INFORMATION
  Report Type: 
  Country: None (occurrence: None)
  Receive Date: 20040407
  Receipt Date: 20040325
  Transmission Date: 20050107
  Serious: Yes (Death, Hospitalization)
  Sender: FDA-Public Use
  Company Number: ES-GLAXOSMITHKLINE-B0328011A

PATIENT
  Age: 34 Year
  Sex: Male
  Weight: 70 kg

DRUGS (6)
  1. ZIAGEN [Suspect]
     Indication: HIV INFECTION
     Dosage: 600MG PER DAY
     Route: 048
     Dates: start: 20030301, end: 20031101
  2. PEGINTERFERON ALFA-2A [Suspect]
     Indication: HEPATITIS
     Dosage: 120MCG WEEKLY
     Route: 030
     Dates: start: 20031001, end: 20031101
  3. RIBAVIRIN [Suspect]
     Indication: HEPATITIS
     Dosage: 100MG PER DAY
     Route: 048
     Dates: start: 20031001, end: 20031101
  4. TENOFOVIR DISOPROXIL FUMARATE [Suspect]
     Indication: HIV INFECTION
     Dosage: 80MG PER DAY
     Route: 048
     Dates: start: 20030301, end: 20031101
  5. ESTAVUDINE [Suspect]
     Indication: HIV INFECTION
     Dosage: 80MG PER DAY
     Route: 048
     Dates: start: 20030301, end: 20031101
  6. METHADONE HCL [Concomitant]
     Indication: HEPATITIS

REACTIONS (6)
  - ABDOMINAL PAIN [None]
  - ABDOMINAL SEPSIS [None]
  - BLOOD LACTIC ACID INCREASED [None]
  - NEUTROPENIA [None]
  - PYREXIA [None]
  - THROMBOCYTOPENIA [None]
